FAERS Safety Report 20846495 (Version 1)
Quarter: 2022Q2

REPORT INFORMATION
  Report Type: Report from Study
  Country: US (occurrence: US)
  Receive Date: 20220518
  Receipt Date: 20220518
  Transmission Date: 20220721
  Serious: Yes (Hospitalization)
  Sender: FDA-Public Use
  Company Number: US-ACTELION-A-US2019-189243

PATIENT
  Age: 9 Month
  Sex: Male

DRUGS (19)
  1. TRACLEER [Suspect]
     Active Substance: BOSENTAN
     Indication: Pulmonary arterial hypertension
     Dosage: 16 MG, BID
     Route: 048
     Dates: start: 20190311, end: 20200213
  2. TRACLEER [Suspect]
     Active Substance: BOSENTAN
     Dosage: 16 MG, BID (J-TUBE)
  3. REVATIO [Concomitant]
     Active Substance: SILDENAFIL CITRATE
  4. SYNAGIS [Concomitant]
     Active Substance: PALIVIZUMAB
  5. NIZATIDINE [Concomitant]
     Active Substance: NIZATIDINE
  6. EPANED [Concomitant]
     Active Substance: ENALAPRIL MALEATE
     Dosage: 0.2 ML, BID
     Route: 048
     Dates: start: 20190329
  7. PLAVIX [Concomitant]
     Active Substance: CLOPIDOGREL BISULFATE
     Dosage: 1.7 MG
  8. ASPIRIN [Concomitant]
     Active Substance: ASPIRIN
     Dosage: 40 MG, QD
     Dates: start: 20190329
  9. BUDESONIDE [Concomitant]
     Active Substance: BUDESONIDE
  10. CROMOLYN SODIUM [Concomitant]
     Active Substance: CROMOLYN SODIUM
  11. LEVALBUTEROL [Concomitant]
     Active Substance: LEVALBUTEROL
  12. TRIAMCINOLON [Concomitant]
  13. AMOXICILLIN [Concomitant]
     Active Substance: AMOXICILLIN
  14. LASIX [Concomitant]
     Active Substance: FUROSEMIDE
  15. OMEPRAZOLE [Concomitant]
     Active Substance: OMEPRAZOLE
  16. ERY-TAB [Concomitant]
     Active Substance: ERYTHROMYCIN
  17. TADALAFIL [Concomitant]
     Active Substance: TADALAFIL
  18. IPRATROPIUM [Concomitant]
     Active Substance: IPRATROPIUM
  19. CEFDINIR [Concomitant]
     Active Substance: CEFDINIR

REACTIONS (9)
  - Cardiac operation [Unknown]
  - Catheterisation cardiac [Recovered/Resolved]
  - Newborn persistent pulmonary hypertension [Unknown]
  - Therapeutic embolisation [Unknown]
  - Respiratory syncytial virus infection [Unknown]
  - Jejunostomy [Unknown]
  - Alanine aminotransferase increased [Recovering/Resolving]
  - Product dose omission issue [Unknown]
  - Off label use [Unknown]

NARRATIVE: CASE EVENT DATE: 20190327
